FAERS Safety Report 5414956-1 (Version None)
Quarter: 2007Q3

REPORT INFORMATION
  Report Type: 
  Country: None (occurrence: None)
  Receive Date: 20070815
  Receipt Date: 20070803
  Transmission Date: 20080115
  Serious: Yes (Hospitalization)
  Sender: FDA-Public Use
  Company Number: FR-JNJFOC-20070701393

PATIENT
  Age: 51 Year
  Sex: Male

DRUGS (12)
  1. ETRAVIRINE [Suspect]
     Indication: HIV INFECTION
     Route: 048
  2. MK-0518/PLACEBO [Suspect]
     Route: 048
  3. MK-0518/PLACEBO [Suspect]
     Indication: HIV INFECTION
     Route: 048
  4. PREZISTA [Suspect]
     Route: 048
  5. PREZISTA [Suspect]
     Indication: HIV INFECTION
     Route: 048
  6. DICLOFENAC [Suspect]
     Indication: GOUT
     Route: 048
  7. RITONAVIR [Concomitant]
     Route: 065
  8. RITONAVIR [Concomitant]
     Indication: HIV INFECTION
     Route: 065
  9. DIURETIC [Concomitant]
     Route: 065
  10. RAMIPRIL [Concomitant]
     Route: 065
  11. RAMIPRIL [Concomitant]
     Route: 065
  12. SULFAMETHOXAZOLE AND TRIMETHOPRIM [Concomitant]
     Route: 065

REACTIONS (4)
  - ANAEMIA [None]
  - CONGESTIVE CARDIOMYOPATHY [None]
  - GOUT [None]
  - LEFT VENTRICULAR FAILURE [None]
